FAERS Safety Report 8014829-4 (Version None)
Quarter: 2011Q4

REPORT INFORMATION
  Report Type: 
  Country: None (occurrence: None)
  Receive Date: 20111229
  Receipt Date: 20111220
  Transmission Date: 20120403
  Serious: Yes (Hospitalization, Other)
  Sender: FDA-Public Use
  Company Number: BR-ROCHE-800011

PATIENT
  Sex: Male

DRUGS (12)
  1. PREDNISONE TAB [Concomitant]
  2. CALCIUM CARBONATE [Concomitant]
  3. THALIDOMIDE [Concomitant]
  4. DOMPERIDONE [Concomitant]
  5. AMOXICILLIN AND CLAVULANATE POTASSIUM [Concomitant]
  6. MORPHINE SULFATE [Concomitant]
  7. VITAMIN D [Concomitant]
  8. DIMETHICONE [Concomitant]
     Route: 065
  9. MABTHERA [Suspect]
     Indication: PRODUCT USED FOR UNKNOWN INDICATION
     Dosage: DOSE, FORM FREQUENCY NOT REPORTED.
     Route: 042
     Dates: start: 20110701, end: 20110715
  10. LEVOTHYROXINE SODIUM [Concomitant]
  11. ACETAMINOPHEN [Concomitant]
  12. PRATIPRAZOL [Concomitant]

REACTIONS (6)
  - NAUSEA [None]
  - SYNCOPE [None]
  - APPETITE DISORDER [None]
  - HAEMORRHAGE SUBCUTANEOUS [None]
  - ABASIA [None]
  - DYSPHAGIA [None]
